FAERS Safety Report 4761599-9 (Version None)
Quarter: 2005Q3

REPORT INFORMATION
  Report Type: 
  Country: None (occurrence: None)
  Receive Date: 20050906
  Receipt Date: 20050829
  Transmission Date: 20060218
  Serious: Yes (Other)
  Sender: FDA-Public Use
  Company Number: 2005UW12780

PATIENT
  Age: 67 Year
  Sex: Male

DRUGS (11)
  1. CASODEX [Suspect]
     Route: 048
  2. IMODIUM [Concomitant]
  3. CELEBREX [Concomitant]
  4. NORVASC [Concomitant]
  5. COLOZOL [Concomitant]
  6. CELENIUM [Concomitant]
  7. OMEGA 3 [Concomitant]
  8. VITAMIN E [Concomitant]
  9. ASPIRIN [Concomitant]
  10. ESTER C [Concomitant]
  11. CENTRUM [Concomitant]

REACTIONS (1)
  - NEPHROLITHIASIS [None]
